FAERS Safety Report 13156199 (Version 3)
Quarter: 2018Q1

REPORT INFORMATION
  Report Type: Report from Study
  Country: US (occurrence: US)
  Receive Date: 20170126
  Receipt Date: 20180308
  Transmission Date: 20180508
  Serious: Yes (Other)
  Sender: FDA-Public Use
  Company Number: US-MUNDIPHARMA DS AND PHARMACOVIGILANCE-USA-2017-0136153

PATIENT
  Age: 54 Year
  Sex: Female

DRUGS (3)
  1. OXYCODONE HYDROCHLORIDE. [Suspect]
     Active Substance: OXYCODONE HYDROCHLORIDE
     Indication: PAIN
  2. OXYCODONE HYDROCHLORIDE. [Suspect]
     Active Substance: OXYCODONE HYDROCHLORIDE
     Indication: BACK PAIN
     Dosage: 60 MG, Q12H
     Route: 048
     Dates: start: 20161202
  3. OXYCODONE HYDROCHLORIDE. [Suspect]
     Active Substance: OXYCODONE HYDROCHLORIDE
     Indication: ARTHRALGIA
     Dosage: 60 MG, Q12H
     Route: 048
     Dates: start: 20160809

REACTIONS (20)
  - Alopecia [Unknown]
  - Attention deficit/hyperactivity disorder [Unknown]
  - Spondylolisthesis [Unknown]
  - Joint swelling [Unknown]
  - Syncope [Unknown]
  - Contusion [Unknown]
  - Vitamin D increased [Unknown]
  - Anxiety [Unknown]
  - Systemic lupus erythematosus [Unknown]
  - Sciatica [Unknown]
  - Depression [Unknown]
  - Rash generalised [Unknown]
  - Oedema [Unknown]
  - Foot fracture [Unknown]
  - Chronic obstructive pulmonary disease [Unknown]
  - Dermatitis [Unknown]
  - Dizziness [Unknown]
  - Carpal tunnel syndrome [Unknown]
  - Nail bed infection [Unknown]
  - Pain [Unknown]

NARRATIVE: CASE EVENT DATE: 20161212
